FAERS Safety Report 13042189 (Version 1)
Quarter: 2016Q4

REPORT INFORMATION
  Report Type: Spontaneous
  Country: DE (occurrence: DE)
  Receive Date: 20161219
  Receipt Date: 20161219
  Transmission Date: 20170207
  Serious: Yes (Congenital Anomaly)
  Sender: FDA-Public Use
  Company Number: DE-UCBSA-2016047361

PATIENT
  Sex: Female
  Weight: 38.6 kg

DRUGS (10)
  1. KEPPRA [Suspect]
     Active Substance: LEVETIRACETAM
     Dosage: 1000 MG, 2X/DAY (BID)
     Route: 064
  2. MONO-EMBOLEX [Concomitant]
     Active Substance: CERTOPARIN SODIUM
     Indication: FACTOR XI DEFICIENCY
     Dosage: 3000 IU, ONCE DAILY (QD)
     Route: 064
  3. BALDRIAN-DISPERT [Concomitant]
     Indication: SLEEP DISORDER
     Dosage: UNK
     Route: 064
  4. PROGESTAN [Concomitant]
     Active Substance: PROGESTERONE
     Indication: PROPHYLAXIS OF ABORTION
     Dosage: 200 MG, 2X/DAY (BID)
     Route: 064
  5. ASPIRIN. [Concomitant]
     Active Substance: ASPIRIN
     Indication: PRODUCT USED FOR UNKNOWN INDICATION
     Dosage: 50 MG, ONCE DAILY (QD)
     Route: 064
  6. L-THYROXIN [Concomitant]
     Active Substance: LEVOTHYROXINE SODIUM
     Indication: HYPOTHYROIDISM
     Dosage: 25 ?G, ONCE DAILY (QD)
     Route: 064
  7. KEPPRA [Suspect]
     Active Substance: LEVETIRACETAM
     Indication: EPILEPSY
     Dosage: 750 MG, 2X/DAY (BID)
     Route: 064
  8. INNOHEP [Concomitant]
     Active Substance: TINZAPARIN SODIUM
     Indication: FACTOR XI DEFICIENCY
     Dosage: UNK
     Route: 064
  9. DOXYLAMINE [Concomitant]
     Active Substance: DOXYLAMINE
     Indication: SLEEP DISORDER
     Dosage: UNK
     Route: 064
  10. FOLIC ACID. [Concomitant]
     Active Substance: FOLIC ACID
     Indication: PRODUCT USED FOR UNKNOWN INDICATION
     Dosage: UNK

REACTIONS (2)
  - Haemangioma congenital [Not Recovered/Not Resolved]
  - Foetal exposure during pregnancy [Unknown]

NARRATIVE: CASE EVENT DATE: 2015
